FAERS Safety Report 7220379-5 (Version None)
Quarter: 2011Q1

REPORT INFORMATION
  Report Type: 
  Country: None (occurrence: None)
  Receive Date: 20110111
  Receipt Date: 20110110
  Transmission Date: 20110831
  Serious: Yes (Hospitalization)
  Sender: FDA-Public Use
  Company Number: US-AMGEN-USASP2011001369

PATIENT

DRUGS (1)
  1. ENBREL [Suspect]
     Indication: ANKYLOSING SPONDYLITIS
     Dates: start: 20040301

REACTIONS (8)
  - RENAL CYST [None]
  - GINGIVAL DISORDER [None]
  - INJECTION SITE PAIN [None]
  - RENAL PAIN [None]
  - INJECTION SITE INDURATION [None]
  - JOINT SURGERY [None]
  - TOOTH EXTRACTION [None]
  - INJECTION SITE PRURITUS [None]
